FAERS Safety Report 18992446 (Version 1)
Quarter: 2021Q1

REPORT INFORMATION
  Report Type: Spontaneous
  Country: US (occurrence: US)
  Receive Date: 20210310
  Receipt Date: 20210310
  Transmission Date: 20210420
  Serious: No
  Sender: FDA-Public Use
  Company Number: None

PATIENT
  Age: 98 Year
  Sex: Female
  Weight: 61.7 kg

DRUGS (1)
  1. DAPTOMYCIN IV [Suspect]
     Active Substance: DAPTOMYCIN

REACTIONS (1)
  - Rash [None]

NARRATIVE: CASE EVENT DATE: 20210310
